FAERS Safety Report 6709260-5 (Version None)
Quarter: 2010Q2

REPORT INFORMATION
  Report Type: 
  Country: None (occurrence: None)
  Receive Date: 20100423
  Receipt Date: 20091123
  Transmission Date: 20101027
  Serious: Yes (Disabling)
  Sender: FDA-Public Use
  Company Number: WAES 0911USA04216

PATIENT
  Age: 12 Year
  Sex: Male
  Weight: 54.4316 kg

DRUGS (1)
  1. SINGULAIR [Suspect]
     Indication: ASTHMA
     Dosage: 5 MG/DAILY/PO
     Dates: start: 20071101

REACTIONS (2)
  - EPISTAXIS [None]
  - HEADACHE [None]
